FAERS Safety Report 8054374-3 (Version None)
Quarter: 2012Q1

REPORT INFORMATION
  Report Type: 
  Country: None (occurrence: None)
  Receive Date: 20120118
  Receipt Date: 20120116
  Transmission Date: 20120608
  Serious: Yes (Hospitalization, Other)
  Sender: FDA-Public Use
  Company Number: PHEH2009US02712

PATIENT
  Sex: Male

DRUGS (63)
  1. THALIDOMIDE [Concomitant]
  2. PROCRIT [Concomitant]
     Dosage: UNK
     Dates: start: 20030421
  3. ACYCLOVIR [Concomitant]
  4. GABAPENTIN [Concomitant]
     Dosage: 600 MG, TID
  5. ALBUTEROL [Concomitant]
  6. AMITRIPTYLINE HCL [Concomitant]
     Dosage: UNK
  7. ADVAIR DISKUS 100/50 [Concomitant]
  8. AMLODIPINE [Concomitant]
     Dosage: 10 MG, DAILY
  9. CYTOXAN [Concomitant]
     Dosage: 100 MG,DAILY
  10. VASOTEC [Concomitant]
  11. NORVASC [Concomitant]
  12. PREDNISONE [Concomitant]
     Dosage: UNK
     Dates: start: 20030421
  13. ACTOS [Concomitant]
  14. FLUCONAZOLE [Concomitant]
  15. LISINOPRIL [Concomitant]
     Dosage: 2.5 MG, QD
  16. NASONEX [Concomitant]
     Dosage: UNK
  17. FOLATE SODIUM [Concomitant]
  18. TENORMIN [Concomitant]
  19. ASPIRIN [Concomitant]
  20. HYDROCODONE BITARTRATE [Concomitant]
  21. VITAMIN E [Concomitant]
     Dosage: UNK
  22. SPIRIVA [Concomitant]
  23. POTASSIUM CHLORIDE [Concomitant]
     Dosage: 30 MEQ, QD
  24. TEMAZEPAM [Concomitant]
     Dosage: 15 MG, UNK
  25. PROCRIT                            /00909301/ [Concomitant]
  26. MOTRIN [Concomitant]
  27. DULCOLAX [Concomitant]
  28. PLAVIX [Concomitant]
     Dosage: 75 MG, QD
  29. NEURONTIN [Concomitant]
     Dosage: 600 MG, TID
  30. PROTONIX [Concomitant]
     Dosage: 40 MG, QD
  31. DIOVAN [Concomitant]
     Dosage: 180 MG, UNK
  32. DOCUSATE SODIUM [Concomitant]
     Dosage: 100 MG, BID
  33. ZOMETA [Suspect]
     Dosage: 4 MG, MONTHLY
     Dates: start: 20030421, end: 20041013
  34. LIPITOR [Concomitant]
  35. FOLIC ACID [Concomitant]
  36. SOTALOL HCL [Concomitant]
  37. HYDROCHLOROTHIAZIDE [Concomitant]
  38. MIRALAX [Concomitant]
     Dosage: UNK
  39. CYCLOPHOSPHAMIDE [Concomitant]
     Dosage: 100 MG, QD
  40. METFORMIN HCL [Concomitant]
     Dosage: 500 MG, DAILY
  41. PANTOPRAZOLE SODIUM [Concomitant]
     Dosage: 40 MG, UNK
  42. TUSSIONEX [Concomitant]
  43. METOLAZONE [Concomitant]
     Dosage: 2.5 MG, UNK
  44. ATENOLOL [Concomitant]
  45. LASIX [Concomitant]
  46. LYRICA [Concomitant]
  47. REVLIMID [Concomitant]
     Dosage: UNK
     Dates: end: 20100429
  48. DEXAMETHASONE TAB [Concomitant]
     Dosage: UNK
     Dates: end: 20100429
  49. CARAZOLOL [Concomitant]
     Dosage: 3.125 MG, BID
  50. MEXILETINE HYDROCHLORIDE [Concomitant]
     Dosage: 200 MG, TID
  51. FLONASE [Concomitant]
  52. SYMBICORT [Concomitant]
  53. VENTOLIN [Concomitant]
  54. AZELASTINE HCL [Concomitant]
  55. PREDNISOLONE [Concomitant]
  56. ALLEGRA [Concomitant]
     Dosage: UNK
  57. VALSARTAN [Concomitant]
     Dosage: 80 MG, DAILY
  58. FOLTX [Concomitant]
  59. CARVEDILOL [Concomitant]
     Dosage: 3.125 MG, BID
     Route: 048
  60. NYSTATIN [Concomitant]
  61. ALKERAN [Concomitant]
  62. REQUIP [Concomitant]
  63. GLUCOTROL [Concomitant]

REACTIONS (76)
  - HYPOAESTHESIA [None]
  - MUSCLE SPASMS [None]
  - INSOMNIA [None]
  - ACUTE SINUSITIS [None]
  - UPPER LIMB FRACTURE [None]
  - WHEEZING [None]
  - PULMONARY FIBROSIS [None]
  - CARDIOMEGALY [None]
  - IDIOPATHIC PULMONARY FIBROSIS [None]
  - HYPOXIA [None]
  - RHINITIS ALLERGIC [None]
  - SNORING [None]
  - ABDOMINAL PAIN [None]
  - DIABETES MELLITUS [None]
  - FACET JOINT SYNDROME [None]
  - IRITIS [None]
  - RETINITIS [None]
  - OEDEMA PERIPHERAL [None]
  - UPPER RESPIRATORY TRACT INFECTION [None]
  - PRODUCTIVE COUGH [None]
  - CONSTIPATION [None]
  - LEFT VENTRICULAR DYSFUNCTION [None]
  - HILAR LYMPHADENOPATHY [None]
  - CARDIAC FAILURE CONGESTIVE [None]
  - NEUROPATHY PERIPHERAL [None]
  - RESTLESS LEGS SYNDROME [None]
  - SWELLING FACE [None]
  - DENTAL CARIES [None]
  - EMPHYSEMA [None]
  - CHEST DISCOMFORT [None]
  - DIVERTICULUM [None]
  - LUNG NEOPLASM [None]
  - MYOCARDIAL ISCHAEMIA [None]
  - SPUTUM PURULENT [None]
  - SLEEP APNOEA SYNDROME [None]
  - CONJUNCTIVAL HAEMORRHAGE [None]
  - PAIN [None]
  - TOOTH ABSCESS [None]
  - MACULAR HOLE [None]
  - EXOSTOSIS [None]
  - ATELECTASIS [None]
  - OROPHARYNGEAL PAIN [None]
  - LUNG HYPERINFLATION [None]
  - PALLOR [None]
  - PALPITATIONS [None]
  - LYMPHADENOPATHY MEDIASTINAL [None]
  - INGUINAL HERNIA [None]
  - DYSPNOEA [None]
  - INTERVERTEBRAL DISC DEGENERATION [None]
  - CATARACT [None]
  - PARAESTHESIA [None]
  - INFECTION [None]
  - OSTEOMYELITIS [None]
  - TOOTHACHE [None]
  - BRONCHIECTASIS [None]
  - VISUAL ACUITY REDUCED [None]
  - ANAEMIA [None]
  - PULMONARY CONGESTION [None]
  - KERATOACANTHOMA [None]
  - NEPHROLITHIASIS [None]
  - PLEURAL EFFUSION [None]
  - COUGH [None]
  - NEUTROPENIA [None]
  - RESPIRATORY DISTRESS [None]
  - VENTRICULAR ARRHYTHMIA [None]
  - LEUKOPENIA [None]
  - OSTEONECROSIS OF JAW [None]
  - DEFORMITY [None]
  - FIBROSIS [None]
  - ERYTHEMA [None]
  - INTERSTITIAL LUNG DISEASE [None]
  - PANCYTOPENIA [None]
  - WEIGHT INCREASED [None]
  - PRESYNCOPE [None]
  - AORTIC CALCIFICATION [None]
  - ARTERIOSCLEROSIS CORONARY ARTERY [None]
